FAERS Safety Report 6598582-7 (Version None)
Quarter: 2010Q1

REPORT INFORMATION
  Report Type: 
  Country: None (occurrence: None)
  Receive Date: 20100224
  Receipt Date: 20100216
  Transmission Date: 20100710
  Serious: Yes (Hospitalization)
  Sender: FDA-Public Use
  Company Number: US-BIOGENIDEC-165519

PATIENT
  Sex: Female
  Weight: 45 kg

DRUGS (18)
  1. AVONEX [Suspect]
     Indication: MULTIPLE SCLEROSIS
     Route: 030
     Dates: start: 19960701
  2. AVONEX [Suspect]
     Route: 030
  3. HYDROCODONE [Concomitant]
  4. DITROPAN [Concomitant]
  5. BENADRYL [Concomitant]
  6. INDERAL [Concomitant]
  7. ZYRTEC [Concomitant]
  8. ANTIVERT [Concomitant]
  9. KLONOPIN [Concomitant]
  10. DOMPERIDONE [Concomitant]
  11. PRILOSEC [Concomitant]
  12. TEGRETOL [Concomitant]
  13. PROVIGIL [Concomitant]
  14. MIRALAX [Concomitant]
  15. COLACE [Concomitant]
  16. FOSAMAX [Concomitant]
  17. NASONEX [Concomitant]
  18. PAXIL [Concomitant]

REACTIONS (16)
  - ACCIDENTAL OVERDOSE [None]
  - BALANCE DISORDER [None]
  - COGNITIVE DISORDER [None]
  - COMA [None]
  - CONDITION AGGRAVATED [None]
  - DRUG DELIVERY DEVICE IMPLANTATION [None]
  - FALL [None]
  - INFLUENZA LIKE ILLNESS [None]
  - INJECTION SITE SCAR [None]
  - MULTIPLE SCLEROSIS [None]
  - MULTIPLE SCLEROSIS RELAPSE [None]
  - MUSCLE SPASTICITY [None]
  - RADIUS FRACTURE [None]
  - RESPIRATORY ARREST [None]
  - VERTIGO [None]
  - WEIGHT INCREASED [None]
